FAERS Safety Report 5040017-X (Version None)
Quarter: 2006Q2

REPORT INFORMATION
  Report Type: 
  Country: None (occurrence: None)
  Receive Date: 20060630
  Receipt Date: 20060623
  Transmission Date: 20061013
  Serious: Yes (Hospitalization)
  Sender: FDA-Public Use
  Company Number: DE-JNJFOC-20060506377

PATIENT
  Sex: Male
  Weight: 80 kg

DRUGS (2)
  1. REMINYL [Suspect]
     Indication: DEMENTIA
     Route: 065
  2. ASPIRIN [Suspect]
     Indication: MYOCARDIAL ISCHAEMIA
     Route: 065

REACTIONS (1)
  - GASTRIC ULCER [None]
